FAERS Safety Report 5306520-X (Version None)
Quarter: 2007Q2

REPORT INFORMATION
  Report Type: 
  Country: None (occurrence: None)
  Receive Date: 20070419
  Receipt Date: 20070406
  Transmission Date: 20071010
  Serious: Yes (Hospitalization)
  Sender: FDA-Public Use
  Company Number: 2007AL001239

PATIENT
  Age: 80 Year
  Sex: Male

DRUGS (3)
  1. RANITIDINE [Suspect]
  2. CODEINE PHOSPHATE [Concomitant]
  3. TRAPIDIL [Concomitant]

REACTIONS (9)
  - BLOOD GLUCOSE INCREASED [None]
  - BLOOD LACTATE DEHYDROGENASE INCREASED [None]
  - DRUG ERUPTION [None]
  - GLYCOSYLATED HAEMOGLOBIN INCREASED [None]
  - LYMPH NODE PALPABLE [None]
  - LYMPHOCYTE STIMULATION TEST POSITIVE [None]
  - PIGMENTATION DISORDER [None]
  - SKIN DISCOLOURATION [None]
  - WHITE BLOOD CELL COUNT INCREASED [None]
